FAERS Safety Report 5277216-8 (Version None)
Quarter: 2007Q1

REPORT INFORMATION
  Report Type: 
  Country: None (occurrence: None)
  Receive Date: 20070322
  Receipt Date: 20070322
  Transmission Date: 20070707
  Serious: Yes (Other)
  Sender: FDA-Public Use
  Company Number: None

PATIENT
  Age: 59 Year
  Sex: Female
  Weight: 92.9874 kg

DRUGS (1)
  1. OXYTROL [Suspect]
     Indication: URINARY INCONTINENCE
     Dosage: APPLY ONE PATCH TWICE A WEEK

REACTIONS (3)
  - APPLICATION SITE DISCOLOURATION [None]
  - APPLICATION SITE DRYNESS [None]
  - PHARMACEUTICAL PRODUCT COMPLAINT [None]
